FAERS Safety Report 5285356-2 (Version None)
Quarter: 2007Q2

REPORT INFORMATION
  Report Type: 
  Country: None (occurrence: None)
  Receive Date: 20070403
  Receipt Date: 20070322
  Transmission Date: 20071010
  Serious: Yes (Other)
  Sender: FDA-Public Use
  Company Number: GB-PFIZER INC-2007024337

PATIENT
  Age: 50 Year
  Sex: Male

DRUGS (3)
  1. PHENYTOIN [Suspect]
     Indication: CONVULSION
  2. PHENOBARBITAL TAB [Interacting]
     Indication: CONVULSION
     Dates: start: 20041001
  3. GABITRIL [Interacting]
     Indication: CONVULSION
     Route: 048

REACTIONS (2)
  - CONVULSION [None]
  - DRUG INTERACTION [None]
